FAERS Safety Report 19911339 (Version 1)
Quarter: 2021Q4

REPORT INFORMATION
  Report Type: Spontaneous
  Country: HR (occurrence: HR)
  Receive Date: 20211004
  Receipt Date: 20211004
  Transmission Date: 20220304
  Serious: Yes (Other)
  Sender: FDA-Public Use
  Company Number: HR-NOVARTISPH-NVSC2021HR220014

PATIENT
  Age: 63 Year
  Sex: Male

DRUGS (5)
  1. VANCOMYCIN HYDROCHLORIDE [Suspect]
     Active Substance: VANCOMYCIN HYDROCHLORIDE
     Indication: Central nervous system infection
     Dosage: UNK
     Route: 065
  2. MEROPENEM [Suspect]
     Active Substance: MEROPENEM
     Indication: Central nervous system infection
     Dosage: UNK
     Route: 065
  3. AMPHOTERICIN B [Suspect]
     Active Substance: AMPHOTERICIN B
     Indication: Central nervous system infection
     Dosage: UNK
     Route: 065
  4. CRESEMBA [Suspect]
     Active Substance: ISAVUCONAZONIUM SULFATE
     Indication: Fungal infection
     Dosage: 600 MG, QD (200 MG, 3X/DAY)
     Route: 042
  5. CRESEMBA [Suspect]
     Active Substance: ISAVUCONAZONIUM SULFATE
     Dosage: 200 MG, QD (200 MG, 1X/DAY)
     Route: 042

REACTIONS (7)
  - Central nervous system lesion [Unknown]
  - Ataxia [Unknown]
  - Dysphagia [Unknown]
  - Somnolence [Unknown]
  - Vertigo [Unknown]
  - Pyrexia [Unknown]
  - Off label use [Unknown]
